FAERS Safety Report 6167074-1 (Version None)
Quarter: 2009Q2

REPORT INFORMATION
  Report Type: 
  Country: None (occurrence: None)
  Receive Date: 20090424
  Receipt Date: 20090414
  Transmission Date: 20091009
  Serious: Yes (Hospitalization)
  Sender: FDA-Public Use
  Company Number: NO-PFIZER INC-2009187571

PATIENT

DRUGS (5)
  1. DOSTINEX [Suspect]
     Indication: ACROMEGALY
     Dosage: FREQUENCY: X 1, ONCE A WEEK;
     Route: 048
     Dates: start: 20060101, end: 20090101
  2. ADALAT [Concomitant]
     Indication: HYPERTENSION
     Dosage: 40 MG, 1X/DAY
     Dates: start: 20070501
  3. SANDOSTATIN LAR [Concomitant]
     Indication: ACROMEGALY
     Dosage: 30 MG, MONTHLY
     Dates: start: 20060301
  4. SELO-ZOK [Concomitant]
     Indication: HYPERTENSION
     Dosage: 50 MG, 2X/DAY
     Dates: start: 20070901
  5. MAREVAN ^ORION^ [Concomitant]
     Indication: THROMBOSIS PROPHYLAXIS
     Dosage: 32.5 MG, WEEKLY
     Route: 048
     Dates: start: 20081101

REACTIONS (3)
  - AORTIC ANEURYSM [None]
  - CARDIAC MURMUR [None]
  - DYSPNOEA [None]
